FAERS Safety Report 9543912 (Version 1)
Quarter: 2013Q2

REPORT INFORMATION
  Report Type: Spontaneous
  Country: US (occurrence: None)
  Receive Date: 20130524
  Receipt Date: 20130524
  Transmission Date: 20140414
  Serious: Yes (Other)
  Sender: FDA-Public Use
  Company Number: PHEH2013US004811

PATIENT
  Age: 36 Year
  Sex: Female

DRUGS (3)
  1. GILENYA [Suspect]
     Indication: MULTIPLE SCLEROSIS
     Route: 048
     Dates: start: 20130225
  2. LEXAPRO (ESCITALOPRAM OXALATE) [Concomitant]
  3. NEXAVAR (SORAFENIB TOSILATE) [Concomitant]

REACTIONS (8)
  - Bradycardia [None]
  - Eructation [None]
  - Panic attack [None]
  - Nervous system disorder [None]
  - Chest pain [None]
  - Anxiety [None]
  - Blood pressure decreased [None]
  - Chest discomfort [None]
